FAERS Safety Report 9935352 (Version 2)
Quarter: 2014Q1

REPORT INFORMATION
  Report Type: Spontaneous
  Country: US (occurrence: US)
  Receive Date: 20140228
  Receipt Date: 20140311
  Transmission Date: 20141002
  Serious: No
  Sender: FDA-Public Use
  Company Number: US-PFIZER INC-2014056999

PATIENT
  Age: 75 Year
  Sex: Female
  Weight: 72.56 kg

DRUGS (10)
  1. AMLODIPINE BESILATE [Suspect]
     Indication: HYPERTENSION
     Dosage: 10 MG, DAILY
  2. AMLODIPINE BESILATE [Interacting]
     Dosage: UNK
  3. ATENOLOL [Interacting]
     Dosage: UNK
  4. ATENOLOL [Interacting]
     Indication: HYPERTENSION
     Dosage: 25 MG, 1X/DAY
  5. LOVASTATIN [Interacting]
     Indication: BLOOD CHOLESTEROL ABNORMAL
     Dosage: 20 MG, 1X/DAY
  6. LOVASTATIN [Interacting]
     Dosage: UNK
  7. PREDNISONE [Interacting]
     Indication: PAIN
     Dosage: 5 MG, DAILY
  8. PREDNISONE [Interacting]
     Dosage: 10 MG, DAILY
  9. PREDNISONE [Interacting]
     Dosage: UNK
  10. XELJANZ [Concomitant]
     Dosage: UNK

REACTIONS (7)
  - Joint swelling [Not Recovered/Not Resolved]
  - Local swelling [Not Recovered/Not Resolved]
  - Arthralgia [Unknown]
  - Myalgia [Unknown]
  - Muscular weakness [Unknown]
  - Pain [Unknown]
  - Drug interaction [Unknown]
